FAERS Safety Report 11870555 (Version 2)
Quarter: 2016Q4

REPORT INFORMATION
  Report Type: Spontaneous
  Country: US (occurrence: US)
  Receive Date: 20151228
  Receipt Date: 20161219
  Transmission Date: 20170206
  Serious: Yes (Hospitalization, Other)
  Sender: FDA-Public Use
  Company Number: US-SANOFI-AVENTIS-2012SA065692

PATIENT
  Age: 56 Year
  Sex: Male
  Weight: 121.5 kg

DRUGS (37)
  1. PLAVIX [Suspect]
     Active Substance: CLOPIDOGREL BISULFATE
     Indication: ACUTE CORONARY SYNDROME
     Route: 048
     Dates: end: 2010
  2. PLAVIX [Suspect]
     Active Substance: CLOPIDOGREL BISULFATE
     Indication: ACUTE CORONARY SYNDROME
  3. METOPROLOL. [Concomitant]
     Active Substance: METOPROLOL
  4. COREG [Concomitant]
     Active Substance: CARVEDILOL
  5. ONDANSETRON [Concomitant]
     Active Substance: ONDANSETRON
     Route: 048
  6. LEVAQUIN [Concomitant]
     Active Substance: LEVOFLOXACIN
     Dosage: 500 MG FOR 10 DAYS
     Route: 048
  7. PLAVIX [Suspect]
     Active Substance: CLOPIDOGREL BISULFATE
     Indication: STENT PLACEMENT
     Route: 048
     Dates: start: 20050903
  8. PLAVIX [Suspect]
     Active Substance: CLOPIDOGREL BISULFATE
     Indication: MYOCARDIAL INFARCTION
     Route: 048
     Dates: end: 2010
  9. PLAVIX [Suspect]
     Active Substance: CLOPIDOGREL BISULFATE
     Indication: MYOCARDIAL INFARCTION
  10. LASIX [Concomitant]
     Active Substance: FUROSEMIDE
  11. ALBUTEROL. [Concomitant]
     Active Substance: ALBUTEROL
  12. PLAVIX [Suspect]
     Active Substance: CLOPIDOGREL BISULFATE
     Indication: STENT PLACEMENT
  13. VERSED [Concomitant]
     Active Substance: MIDAZOLAM HYDROCHLORIDE
  14. IBUPROFEN. [Concomitant]
     Active Substance: IBUPROFEN
     Indication: PAIN
  15. PLAVIX [Suspect]
     Active Substance: CLOPIDOGREL BISULFATE
     Indication: STENT PLACEMENT
     Route: 048
     Dates: end: 2010
  16. CELEBREX [Concomitant]
     Active Substance: CELECOXIB
  17. DEMEROL [Concomitant]
     Active Substance: MEPERIDINE HYDROCHLORIDE
  18. VICODIN [Concomitant]
     Active Substance: ACETAMINOPHEN\HYDROCODONE BITARTRATE
  19. CAPTOPRIL. [Concomitant]
     Active Substance: CAPTOPRIL
  20. ALDACTONE [Concomitant]
     Active Substance: SPIRONOLACTONE
  21. SIMVASTATIN. [Concomitant]
     Active Substance: SIMVASTATIN
     Dosage: 20 MG TABLET 1 ONCE A DAY FOR 90 DAYS, DISPENSE 90 UNSPECIFIED, REFILLS 3
  22. PRILOSEC [Concomitant]
     Active Substance: OMEPRAZOLE MAGNESIUM
  23. ADVIL [Concomitant]
     Active Substance: IBUPROFEN
  24. MORPHINE [Concomitant]
     Active Substance: MORPHINE
     Route: 030
  25. PLAVIX [Suspect]
     Active Substance: CLOPIDOGREL BISULFATE
     Indication: MYOCARDIAL INFARCTION
     Route: 048
     Dates: start: 20050903
  26. PLAVIX [Suspect]
     Active Substance: CLOPIDOGREL BISULFATE
     Indication: ACUTE CORONARY SYNDROME
     Route: 048
     Dates: start: 20050903
  27. ASPIRIN. [Concomitant]
     Active Substance: ASPIRIN
  28. LISINOPRIL. [Concomitant]
     Active Substance: LISINOPRIL
  29. LOPRESSOR [Concomitant]
     Active Substance: METOPROLOL TARTRATE
  30. XANAX [Concomitant]
     Active Substance: ALPRAZOLAM
  31. FISH OIL [Concomitant]
     Active Substance: FISH OIL
     Dosage: 300 MG-108 MG-162 MG
  32. ZOFRAN [Concomitant]
     Active Substance: ONDANSETRON HYDROCHLORIDE
     Route: 048
  33. LIPITOR [Concomitant]
     Active Substance: ATORVASTATIN CALCIUM
  34. PREVACID [Concomitant]
     Active Substance: LANSOPRAZOLE
     Indication: GASTROOESOPHAGEAL REFLUX DISEASE
  35. FLUORESCEIN [Concomitant]
     Active Substance: FLUORESCEIN
     Dosage: 1 STRIP
  36. PROPARACAINE [Concomitant]
     Active Substance: PROPARACAINE
     Dosage: 1 DROPS
  37. NORCO [Concomitant]
     Active Substance: ACETAMINOPHEN\HYDROCODONE BITARTRATE
     Route: 048

REACTIONS (6)
  - Internal haemorrhage [Unknown]
  - Haematochezia [Recovered/Resolved]
  - Ulcer haemorrhage [Unknown]
  - Gastrointestinal haemorrhage [Recovered/Resolved]
  - Blood urine present [Unknown]
  - Anaemia [Unknown]

NARRATIVE: CASE EVENT DATE: 200510
